FAERS Safety Report 21258413 (Version 1)
Quarter: 2022Q3

REPORT INFORMATION
  Report Type: Spontaneous
  Country: US (occurrence: US)
  Receive Date: 20220826
  Receipt Date: 20220826
  Transmission Date: 20221027
  Serious: Yes (Other)
  Sender: FDA-Public Use
  Company Number: US-MLMSERVICE-20220817-3733361-1

PATIENT
  Age: 39 Year
  Sex: Female

DRUGS (6)
  1. CISPLATIN [Suspect]
     Active Substance: CISPLATIN
     Indication: Cervix carcinoma stage IV
     Dosage: 50% DOSE, DOSE: 1 CYCLICAL
  2. BEVACIZUMAB [Concomitant]
     Active Substance: BEVACIZUMAB
     Indication: Cervix carcinoma stage IV
     Dosage: 50% DOSE
  3. PACLITAXEL [Concomitant]
     Active Substance: PACLITAXEL
     Indication: Cervix carcinoma stage IV
     Dosage: 50% DOSE
  4. PACLITAXEL [Concomitant]
     Active Substance: PACLITAXEL
     Indication: Metastases to lung
     Dosage: 50% DOSE
  5. BEVACIZUMAB [Concomitant]
     Active Substance: BEVACIZUMAB
     Indication: Metastases to lung
     Dosage: 50% DOSE
  6. CISPLATIN [Suspect]
     Active Substance: CISPLATIN
     Indication: Metastases to lung
     Dosage: 50% DOSE, DOSE: 1 CYCLICAL

REACTIONS (3)
  - Hypomagnesaemia [Unknown]
  - Drug intolerance [Unknown]
  - Off label use [Unknown]
